FAERS Safety Report 5886734-0 (Version None)
Quarter: 2008Q3

REPORT INFORMATION
  Report Type: 
  Country: None (occurrence: None)
  Receive Date: 20080917
  Receipt Date: 20080912
  Transmission Date: 20090109
  Serious: Yes (Death, Other)
  Sender: FDA-Public Use
  Company Number: PHHY2008JP11598

PATIENT
  Sex: Male
  Weight: 52 kg

DRUGS (1)
  1. ZOMETA [Suspect]
     Indication: HYPERCALCAEMIA OF MALIGNANCY
     Dosage: 4 MG
     Route: 042
     Dates: start: 20080618, end: 20080618

REACTIONS (7)
  - C-REACTIVE PROTEIN INCREASED [None]
  - CARDIAC ARREST [None]
  - HYPERKALAEMIA [None]
  - INFECTION [None]
  - PYREXIA [None]
  - RENAL FAILURE ACUTE [None]
  - URINE OUTPUT DECREASED [None]
